FAERS Safety Report 10108985 (Version 1)
Quarter: 2014Q2

REPORT INFORMATION
  Report Type: Spontaneous
  Country: US (occurrence: US)
  Receive Date: 20140425
  Receipt Date: 20140425
  Transmission Date: 20141212
  Serious: Yes (Hospitalization)
  Sender: FDA-Public Use
  Company Number: US-BAYER-2014-059625

PATIENT
  Age: 38 Year
  Sex: Female
  Weight: 45.35 kg

DRUGS (3)
  1. YAZ [Suspect]
  2. YASMIN [Suspect]
     Indication: UTERINE LEIOMYOMA
  3. YASMIN [Suspect]
     Indication: MENORRHAGIA

REACTIONS (1)
  - Deep vein thrombosis [Recovered/Resolved]
